FAERS Safety Report 12500996 (Version 1)
Quarter: 2016Q2

REPORT INFORMATION
  Report Type: Report from Study
  Country: CA (occurrence: CA)
  Receive Date: 20160627
  Receipt Date: 20160627
  Transmission Date: 20160815
  Serious: Yes (Other)
  Sender: FDA-Public Use
  Company Number: CA-JNJFOC-20160209636

PATIENT
  Age: 33 Year
  Sex: Female
  Weight: 126 kg

DRUGS (1)
  1. REMICADE [Suspect]
     Active Substance: INFLIXIMAB
     Indication: COLITIS ULCERATIVE
     Dosage: THERAPY DURATION: 52 WEEKS)
     Route: 042
     Dates: start: 20131128

REACTIONS (8)
  - Product use issue [Unknown]
  - Oedema [Recovered/Resolved]
  - Guttate psoriasis [Recovered/Resolved]
  - Streptococcal infection [Recovered/Resolved]
  - Off label use [Unknown]
  - Skin mass [Recovered/Resolved]
  - Dermatitis allergic [Recovering/Resolving]
  - Urinary tract infection [Recovered/Resolved]

NARRATIVE: CASE EVENT DATE: 20131128
